FAERS Safety Report 6892103-7 (Version None)
Quarter: 2010Q3

REPORT INFORMATION
  Report Type: 
  Country: None (occurrence: None)
  Receive Date: 20100731
  Receipt Date: 20080126
  Transmission Date: 20110219
  Serious: No
  Sender: FDA-Public Use
  Company Number: US-PFIZER INC-2007104215

PATIENT
  Sex: Male
  Weight: 90.7 kg

DRUGS (1)
  1. CAVERJECT [Suspect]
     Indication: ERECTILE DYSFUNCTION
     Dosage: DAILY: EVERY 3RD DAY
     Dates: start: 20070101

REACTIONS (2)
  - DRUG INEFFECTIVE [None]
  - MALAISE [None]
